FAERS Safety Report 19770798 (Version 4)
Quarter: 2021Q3

REPORT INFORMATION
  Report Type: Spontaneous
  Country: IT (occurrence: IT)
  Receive Date: 20210831
  Receipt Date: 20210923
  Transmission Date: 20211014
  Serious: Yes (Death)
  Sender: FDA-Public Use
  Company Number: IT-ABBVIE-21K-083-4061595-00

PATIENT
  Age: 77 Year
  Sex: Male

DRUGS (11)
  1. MOPRAL [Concomitant]
     Active Substance: OMEPRAZOLE
     Indication: PROPHYLAXIS
     Route: 065
     Dates: start: 20210604, end: 20210810
  2. URBASON [Concomitant]
     Active Substance: METHYLPREDNISOLONE
     Indication: INFLAMMATION
     Route: 065
     Dates: start: 20210731, end: 20210805
  3. NADROPARIN CALCIUM [Concomitant]
     Active Substance: NADROPARIN CALCIUM
     Indication: THROMBOSIS PROPHYLAXIS
  4. VENETOCLAX. [Suspect]
     Active Substance: VENETOCLAX
     Indication: ACUTE MYELOID LEUKAEMIA
     Route: 048
     Dates: start: 20210628, end: 2021
  5. PEVONEDISTAT [Suspect]
     Active Substance: PEVONEDISTAT
     Indication: ACUTE MYELOID LEUKAEMIA
     Route: 041
     Dates: start: 20210628, end: 2021
  6. AZACITIDINE. [Suspect]
     Active Substance: AZACITIDINE
     Indication: ACUTE MYELOID LEUKAEMIA
     Route: 041
     Dates: start: 20210628, end: 2021
  7. SELEPARINA [Concomitant]
     Active Substance: NADROPARIN CALCIUM
     Indication: THROMBOSIS PROPHYLAXIS
     Route: 065
     Dates: start: 20210728, end: 20210818
  8. PEVONEDISTAT. [Suspect]
     Active Substance: PEVONEDISTAT
     Indication: ACUTE MYELOID LEUKAEMIA
     Dosage: UNKNOWN
     Route: 041
     Dates: start: 20210628, end: 2021
  9. ROCEFIN [Concomitant]
     Active Substance: CEFTRIAXONE SODIUM
     Indication: BACTERIAL INFECTION
     Route: 065
     Dates: start: 20210719, end: 20210727
  10. CEFTRIAXONE SODIUM. [Concomitant]
     Active Substance: CEFTRIAXONE SODIUM
     Indication: BACTERIAL INFECTION
     Dates: start: 20210719, end: 20210727
  11. METHYLPREDNISOLONE. [Concomitant]
     Active Substance: METHYLPREDNISOLONE
     Indication: INFLAMMATION
     Dates: start: 20210731, end: 20210805

REACTIONS (1)
  - Acute myeloid leukaemia [Fatal]

NARRATIVE: CASE EVENT DATE: 20210820
